FAERS Safety Report 13949161 (Version 37)
Quarter: 2024Q1

REPORT INFORMATION
  Report Type: Spontaneous
  Country: BR (occurrence: BR)
  Receive Date: 20170908
  Receipt Date: 20240304
  Transmission Date: 20240409
  Serious: Yes (Other)
  Sender: FDA-Public Use
  Company Number: BR-GLAXOSMITHKLINE-BR2016GSK177634

PATIENT

DRUGS (20)
  1. BENLYSTA [Suspect]
     Active Substance: BELIMUMAB
     Indication: Systemic lupus erythematosus
     Dosage: 840 MG, MO 120MG 7 TIMES EVERY MONTH.
     Route: 042
     Dates: start: 20161128
  2. BENLYSTA [Suspect]
     Active Substance: BELIMUMAB
     Dosage: 820 MG
     Route: 042
  3. AMOXICILLIN\CLAVULANATE POTASSIUM [Suspect]
     Active Substance: AMOXICILLIN\CLAVULANATE POTASSIUM
     Indication: Product used for unknown indication
     Dosage: UNK
  4. IBUPROFEN [Suspect]
     Active Substance: IBUPROFEN
     Indication: Product used for unknown indication
     Dosage: UNK
  5. ACYCLOVIR [Suspect]
     Active Substance: ACYCLOVIR
     Indication: Oral pain
     Dosage: UNK
  6. PREDNISONE [Suspect]
     Active Substance: PREDNISONE
     Indication: Systemic lupus erythematosus
     Dosage: 20 MG, QD
  7. PREDNISONE [Suspect]
     Active Substance: PREDNISONE
     Dosage: 5 MG, QD
  8. PREDNISONE [Suspect]
     Active Substance: PREDNISONE
     Dosage: UNK HALF A TABLET FOR ANOTHER 3 DAYS
  9. BETAMETHASONE DIPROPIONATE\KETOCONAZOLE [Suspect]
     Active Substance: BETAMETHASONE DIPROPIONATE\KETOCONAZOLE
     Indication: Product used for unknown indication
     Dosage: UNK
  10. LORATADINE [Suspect]
     Active Substance: LORATADINE
     Indication: Product used for unknown indication
     Dosage: UNK
  11. COVID-19 VACCINE NOS [Suspect]
     Active Substance: COVID-19 VACCINE NOS
     Indication: COVID-19 prophylaxis
     Dosage: UNK
  12. ACETYLCYSTEINE [Suspect]
     Active Substance: ACETYLCYSTEINE
     Indication: Product used for unknown indication
     Dosage: UNK
  13. AZATHIOPRINE [Concomitant]
     Active Substance: AZATHIOPRINE
     Indication: Systemic lupus erythematosus
     Dosage: UNK
     Dates: start: 2010
  14. AZATHIOPRINE [Concomitant]
     Active Substance: AZATHIOPRINE
     Dosage: 1 DF(TABLET), QD
     Dates: start: 20170109
  15. HYDROXYCHLOROQUINE SULFATE [Concomitant]
     Active Substance: HYDROXYCHLOROQUINE SULFATE
     Indication: Product used for unknown indication
     Dosage: UNK
  16. BETAHISTINE [Concomitant]
     Active Substance: BETAHISTINE
     Indication: Product used for unknown indication
     Dosage: UNK
  17. PREDNISONE [Concomitant]
     Active Substance: PREDNISONE
     Indication: Product used for unknown indication
     Dosage: 20 MG
  18. KETOPROFEN [Concomitant]
     Active Substance: KETOPROFEN
     Indication: Product used for unknown indication
     Dosage: UNK
  19. HYDROXYCHLOROQUINE [Concomitant]
     Active Substance: HYDROXYCHLOROQUINE
     Indication: Systemic lupus erythematosus
     Dosage: UNK
     Dates: start: 2010
  20. HYDROXYCHLOROQUINE [Concomitant]
     Active Substance: HYDROXYCHLOROQUINE
     Dosage: 400 MG, UNK

REACTIONS (66)
  - Cholelithiasis [Recovered/Resolved]
  - Pneumonia [Recovered/Resolved]
  - Shock [Recovered/Resolved]
  - Nephrolithiasis [Unknown]
  - Anxiety [Recovered/Resolved]
  - Decreased immune responsiveness [Recovered/Resolved]
  - Headache [Recovered/Resolved]
  - Somnolence [Recovered/Resolved]
  - Peripheral swelling [Recovered/Resolved]
  - Tachycardia [Recovered/Resolved]
  - Skin discolouration [Recovered/Resolved]
  - Abdominal pain upper [Recovered/Resolved]
  - Back pain [Not Recovered/Not Resolved]
  - Vomiting [Recovered/Resolved]
  - Diarrhoea [Recovered/Resolved]
  - Pain [Recovered/Resolved]
  - Swelling [Recovered/Resolved]
  - Dizziness [Recovered/Resolved]
  - Back injury [Recovered/Resolved]
  - Bacterial infection [Recovered/Resolved]
  - Influenza [Recovered/Resolved]
  - Retching [Recovered/Resolved]
  - Pruritus [Recovered/Resolved]
  - Arthralgia [Recovered/Resolved]
  - Labyrinthitis [Recovered/Resolved]
  - Weight increased [Recovered/Resolved]
  - Emotional disorder [Recovered/Resolved]
  - Pyrexia [Recovered/Resolved]
  - Skin lesion [Recovered/Resolved]
  - Weight decreased [Recovered/Resolved]
  - Increased bronchial secretion [Recovered/Resolved]
  - Chest pain [Recovered/Resolved]
  - Cough [Not Recovered/Not Resolved]
  - Catarrh [Recovered/Resolved]
  - Spinal osteoarthritis [Recovered/Resolved]
  - Swelling face [Recovered/Resolved]
  - Mouth injury [Recovered/Resolved]
  - Memory impairment [Recovering/Resolving]
  - Insomnia [Recovered/Resolved]
  - Tremor [Unknown]
  - Renal pain [Unknown]
  - Sensitivity to weather change [Unknown]
  - Fatigue [Unknown]
  - Nightmare [Unknown]
  - Productive cough [Recovered/Resolved]
  - Blood test abnormal [Unknown]
  - Pulmonary mass [Unknown]
  - Hypersensitivity [Unknown]
  - Herpes virus infection [Unknown]
  - Blister [Unknown]
  - Dysphonia [Recovered/Resolved]
  - Suspected COVID-19 [Unknown]
  - SARS-CoV-2 test positive [Unknown]
  - COVID-19 [Unknown]
  - Abdominal pain [Recovered/Resolved]
  - Rhinitis [Not Recovered/Not Resolved]
  - Sinusitis [Not Recovered/Not Resolved]
  - Joint swelling [Unknown]
  - Stomatitis [Not Recovered/Not Resolved]
  - Influenza [Recovered/Resolved]
  - Underdose [Unknown]
  - Inappropriate schedule of product administration [Unknown]
  - Circumstance or information capable of leading to medication error [Unknown]
  - Product dose omission issue [Unknown]
  - Wrong technique in product usage process [Unknown]
  - Product distribution issue [Unknown]

NARRATIVE: CASE EVENT DATE: 20170607
